FAERS Safety Report 7823725-4 (Version None)
Quarter: 2011Q4

REPORT INFORMATION
  Report Type: 
  Country: None (occurrence: None)
  Receive Date: 20111019
  Receipt Date: 20111014
  Transmission Date: 20120403
  Serious: No
  Sender: FDA-Public Use
  Company Number: US-PFIZER INC-2011246979

PATIENT
  Sex: Female
  Weight: 66.667 kg

DRUGS (5)
  1. ATIVAN [Concomitant]
     Dosage: UNK
  2. SIMVASTATIN [Concomitant]
     Indication: BLOOD CHOLESTEROL INCREASED
     Dosage: UNK
     Dates: end: 20111001
  3. SEROQUEL [Concomitant]
     Dosage: UNK
     Dates: end: 20110801
  4. LEXAPRO [Concomitant]
     Dosage: UNK
     Dates: end: 20110801
  5. LYRICA [Suspect]
     Indication: DEMENTIA ALZHEIMER'S TYPE
     Dosage: UNK, 2X/DAY
     Route: 048
     Dates: start: 20110601, end: 20111013

REACTIONS (1)
  - DRUG INEFFECTIVE [None]
